FAERS Safety Report 8960568 (Version 1)
Quarter: 2012Q4

REPORT INFORMATION
  Report Type: Spontaneous
  Country: US (occurrence: None)
  Receive Date: 20121203
  Receipt Date: 20121203
  Transmission Date: 20130627
  Serious: Yes (Hospitalization)
  Sender: FDA-Public Use
  Company Number: 2012-7841

PATIENT
  Age: 62 Year
  Sex: Male

DRUGS (2)
  1. SOMATULINE DEPOT INJECTION (60MG) (SOMATULINE) [Suspect]
     Indication: ACROMEGALY
     Dosage: 90 mg (90 mg, 1 in 28 D), Subcutaneous
90 mg (90 mg, 1 in 28 D), Subcutaneous
     Route: 058
     Dates: start: 201103
  2. SOMATULINE DEPOT INJECTION (60MG) (SOMATULINE) [Suspect]
     Indication: ACROMEGALY
     Dosage: 90 mg (90 mg, 1 in 28 D), Subcutaneous
90 mg (90 mg, 1 in 28 D), Subcutaneous
     Route: 058

REACTIONS (2)
  - Cholelithiasis [None]
  - Condition aggravated [None]
